FAERS Safety Report 9547066 (Version 3)
Quarter: 2014Q1

REPORT INFORMATION
  Report Type: Report from Study
  Country: ES (occurrence: ES)
  Receive Date: 20130924
  Receipt Date: 20140306
  Transmission Date: 20141002
  Serious: Yes (Hospitalization)
  Sender: FDA-Public Use
  Company Number: ES-CELGENEUS-144-21660-13091788

PATIENT
  Age: 72 Year
  Sex: Female
  Weight: 89 kg

DRUGS (2)
  1. ABRAXANE [Suspect]
     Indication: PANCREATIC CARCINOMA
     Route: 041
     Dates: start: 20130819, end: 20130826
  2. GEMCITABINE [Suspect]
     Indication: PANCREATIC CARCINOMA
     Route: 065
     Dates: start: 20130819, end: 20130826

REACTIONS (2)
  - Enteritis [Not Recovered/Not Resolved]
  - White blood cell count decreased [Recovered/Resolved]
